FAERS Safety Report 4924114-2 (Version None)
Quarter: 2006Q1

REPORT INFORMATION
  Report Type: 
  Country: None (occurrence: None)
  Receive Date: 20060227
  Receipt Date: 20051116
  Transmission Date: 20060701
  Serious: No
  Sender: FDA-Public Use
  Company Number: US-GLAXOSMITHKLINE-A0582555A

PATIENT
  Age: 19 Year
  Sex: Female

DRUGS (2)
  1. WELLBUTRIN XL [Suspect]
     Indication: DEPRESSION
     Dosage: 1TAB TWICE PER DAY
     Route: 048
     Dates: start: 20051101
  2. TRILEPTAL [Concomitant]
     Indication: BIPOLAR DISORDER
     Dosage: 300MG THREE TIMES PER DAY
     Route: 048
     Dates: start: 20051001

REACTIONS (1)
  - HEADACHE [None]
